FAERS Safety Report 17257751 (Version 1)
Quarter: 2020Q1

REPORT INFORMATION
  Report Type: Spontaneous
  Country: CN (occurrence: CN)
  Receive Date: 20200110
  Receipt Date: 20200110
  Transmission Date: 20200409
  Serious: Yes (Death, Other)
  Sender: FDA-Public Use
  Company Number: CN-PFIZER INC-2020003586

PATIENT
  Age: 59 Year
  Sex: Male
  Weight: 78 kg

DRUGS (4)
  1. CISPLATIN. [Suspect]
     Active Substance: CISPLATIN
     Dosage: ONCE
     Dates: start: 20141030
  2. EPIRUBICIN HCL [Suspect]
     Active Substance: EPIRUBICIN HYDROCHLORIDE
     Dosage: 66 MG, CYCLIC (D1~D4)
     Route: 041
     Dates: start: 20170401
  3. CISPLATIN. [Suspect]
     Active Substance: CISPLATIN
     Dosage: 230 MG, 1X/DAY
     Route: 041
     Dates: start: 20170406
  4. EPIRUBICIN HCL [Suspect]
     Active Substance: EPIRUBICIN HYDROCHLORIDE
     Dosage: ONCE
     Dates: start: 20141030

REACTIONS (1)
  - Neutropenic colitis [Fatal]

NARRATIVE: CASE EVENT DATE: 20170410
